FAERS Safety Report 7563086-1 (Version None)
Quarter: 2011Q2

REPORT INFORMATION
  Report Type: 
  Country: None (occurrence: None)
  Receive Date: 20110621
  Receipt Date: 20110621
  Transmission Date: 20111010
  Serious: Yes (Hospitalization)
  Sender: FDA-Public Use
  Company Number: None

PATIENT
  Sex: Female
  Weight: 108 kg

DRUGS (19)
  1. LANTUS [Concomitant]
  2. INSULIN LISPRO [Concomitant]
  3. HYDROMORPHONE HCL [Concomitant]
  4. MORPHINE [Concomitant]
  5. WARFARIN SODIUM [Suspect]
     Indication: PULMONARY EMBOLISM
     Dosage: 12MG DAILY PO CHRONIC
     Route: 048
  6. FUROSEMIDE [Concomitant]
  7. PRAVASTATIN [Concomitant]
  8. PREDNISONE [Concomitant]
  9. AZITHROMYCIN [Suspect]
     Indication: PRODUCT USED FOR UNKNOWN INDICATION
     Dosage: PO PAST WEEK
     Route: 048
  10. TOPROL-XL [Concomitant]
  11. NYSTATIN [Concomitant]
  12. LISINOPRIL [Concomitant]
  13. NEXIUM [Concomitant]
  14. FENTANYL [Concomitant]
  15. ADVAIR DISKUS 100/50 [Concomitant]
  16. DUONEBS [Concomitant]
  17. FLUDROCORTISONE ACETATE [Concomitant]
  18. LORAZEPAM [Concomitant]
  19. ISOSORBIDE MONONITRATE [Concomitant]

REACTIONS (3)
  - PETECHIAE [None]
  - INTERNATIONAL NORMALISED RATIO INCREASED [None]
  - HAEMATURIA [None]
